FAERS Safety Report 4678200-5 (Version None)
Quarter: 2005Q2

REPORT INFORMATION
  Report Type: 
  Country: None (occurrence: None)
  Receive Date: 20050527
  Receipt Date: 20050510
  Transmission Date: 20051028
  Serious: Yes (Hospitalization)
  Sender: FDA-Public Use
  Company Number: ATO-05-0135

PATIENT
  Age: 48 Year
  Sex: Male

DRUGS (12)
  1. TRISENOX [Suspect]
     Indication: ACUTE PROMYELOCYTIC LEUKAEMIA
     Dosage: 8.4 MG (8.4 MG, DAILY), IVI
     Route: 042
     Dates: start: 20050222, end: 20050315
  2. FAMOTIDINE [Suspect]
     Dosage: 20 MG (20 MG)
     Dates: start: 20040101, end: 20050226
  3. FLUCONAZOLE [Suspect]
     Dosage: 100 MG (100 MG)
     Dates: start: 20040101, end: 20050226
  4. CHLORPROMAZINE [Suspect]
     Indication: SCHIZOPHRENIA
     Dosage: 50 MG (50 MG)
  5. TRIHEXYPHENIDYL HCL [Suspect]
     Indication: SCHIZOPHRENIA
     Dosage: 6 MG (6 MG)
  6. ZOTEPINE [Suspect]
     Indication: SCHIZOPHRENIA
     Dosage: 300 MG (300 MG)
  7. FLUNITRAZEPAM [Suspect]
     Indication: SCHIZOPHRENIA
     Dosage: 2 MG (2 MG)
  8. GABEXATE MESILATE [Concomitant]
  9. OLANZAPINE [Concomitant]
  10. MAGNESIUM OXIDE [Concomitant]
  11. LANSOPRAZOLE [Concomitant]
  12. ITRACONAZOLE [Concomitant]

REACTIONS (2)
  - ENTERITIS INFECTIOUS [None]
  - ILEUS [None]
